FAERS Safety Report 10044771 (Version 1)
Quarter: 2014Q1

REPORT INFORMATION
  Report Type: Spontaneous
  Country: US (occurrence: None)
  Receive Date: 20140306
  Receipt Date: 20140306
  Transmission Date: 20141002
  Serious: Yes (Hospitalization)
  Sender: FDA-Public Use
  Company Number: 163-21880-13053572

PATIENT
  Age: 58 Year
  Sex: Female

DRUGS (5)
  1. REVLIMID [Suspect]
     Indication: PLASMA CELL MYELOMA
     Route: 048
     Dates: start: 201102
  2. VANCOMYCIN (VANCOMYCIN) [Concomitant]
  3. METOPROLOL TARTRATE (METOPROLOL TARTRATE) [Concomitant]
  4. TYLENOL WITH CODEINE (PANADEINE CO) [Concomitant]
  5. ASPIRIN (ACETYLSALICYLIC ACID) [Concomitant]

REACTIONS (2)
  - Chest pain [None]
  - Urinary tract infection [None]
